FAERS Safety Report 25134517 (Version 1)
Quarter: 2025Q1

REPORT INFORMATION
  Report Type: Spontaneous
  Country: US (occurrence: US)
  Receive Date: 20250328
  Receipt Date: 20250328
  Transmission Date: 20250408
  Serious: Yes (Hospitalization, Other)
  Sender: CATALYST PHARMA
  Company Number: US-CATALYST PHARMACEUTICALS-US-CATA-25-00419

PATIENT
  Age: 18 Year
  Sex: Male
  Weight: 72.689 kg

DRUGS (16)
  1. AGAMREE [Suspect]
     Active Substance: VAMOROLONE
     Indication: Duchenne muscular dystrophy
     Dosage: 7.5 ML DAILY
     Route: 048
     Dates: start: 20240327, end: 20250308
  2. AGAMREE [Suspect]
     Active Substance: VAMOROLONE
     Dosage: 7.5 ML DAILY
     Route: 048
     Dates: start: 202503
  3. ZOLEDRONIC ACID [Suspect]
     Active Substance: ZOLEDRONIC ACID
     Indication: Product used for unknown indication
     Route: 065
     Dates: start: 20250309
  4. UNSPECIFIED INGREDIENT [Suspect]
     Active Substance: UNSPECIFIED INGREDIENT
     Indication: Illness
     Route: 042
     Dates: start: 20250309
  5. CALCIUM [Concomitant]
     Active Substance: CALCIUM
     Indication: Prophylaxis
     Dosage: 600 MG DAILY
     Route: 065
     Dates: end: 20250309
  6. CALCIUM [Concomitant]
     Active Substance: CALCIUM
     Dosage: 600 MG DAILY
     Route: 065
     Dates: start: 202503
  7. CARVEDILOL [Concomitant]
     Active Substance: CARVEDILOL
     Indication: Cardiovascular event prophylaxis
     Dosage: 3.125 MG TWICE A DAY
     Route: 065
     Dates: end: 20250309
  8. CARVEDILOL [Concomitant]
     Active Substance: CARVEDILOL
     Dosage: 3.125 MG TWICE A DAY
     Route: 065
     Dates: start: 202503
  9. DULOXETINE [Concomitant]
     Active Substance: DULOXETINE
     Indication: Migraine
     Dosage: 30 MG DAILY
     Route: 065
     Dates: end: 20250309
  10. DULOXETINE [Concomitant]
     Active Substance: DULOXETINE
     Dosage: 30 MG DAILY
     Route: 065
     Dates: start: 202503
  11. DUVYZAT [Concomitant]
     Active Substance: GIVINOSTAT
     Indication: Duchenne muscular dystrophy
     Dosage: DAILY
     Route: 065
     Dates: end: 20250309
  12. DUVYZAT [Concomitant]
     Active Substance: GIVINOSTAT
     Dosage: DAILY
     Route: 065
     Dates: start: 202503
  13. LISINOPRIL [Concomitant]
     Active Substance: LISINOPRIL
     Indication: Cardiovascular event prophylaxis
     Dosage: 2.5 MG DAILY
     Route: 065
     Dates: end: 20250309
  14. LISINOPRIL [Concomitant]
     Active Substance: LISINOPRIL
     Dosage: 2.5 MG DAILY
     Route: 065
     Dates: start: 202503
  15. VITAMIN D3 [Concomitant]
     Active Substance: CHOLECALCIFEROL
     Indication: Prophylaxis
     Dosage: 5000 IU DAILY
     Route: 065
     Dates: end: 20250309
  16. VITAMIN D3 [Concomitant]
     Active Substance: CHOLECALCIFEROL
     Dosage: 5000 IU DAILY
     Route: 065
     Dates: start: 202503

REACTIONS (3)
  - Infusion related reaction [Recovering/Resolving]
  - Blood pressure decreased [Recovering/Resolving]
  - Blood pressure increased [Recovering/Resolving]

NARRATIVE: CASE EVENT DATE: 20250309
